FAERS Safety Report 8878020 (Version 1)
Quarter: 2012Q4

REPORT INFORMATION
  Report Type: 
  Country: US (occurrence: US)
  Receive Date: 20121025
  Receipt Date: 20121025
  Transmission Date: 20130627
  Serious: No
  Sender: FDA-Public Use
  Company Number: US-AMGEN-USASP2012020539

PATIENT
  Age: 55 Year
  Sex: Female
  Weight: 113.38 kg

DRUGS (11)
  1. ENBREL [Suspect]
     Indication: PSORIATIC ARTHROPATHY
     Dosage: 50 mg, qwk
     Route: 058
     Dates: start: 20111228
  2. SINGULAIR [Concomitant]
     Dosage: 10 mg, UNK
  3. METFORMIN [Concomitant]
     Dosage: 500 mg, UNK
  4. LEVOTHYROXIN [Concomitant]
     Dosage: UNK
  5. LISINOPRIL [Concomitant]
     Dosage: 40 mg, UNK
  6. LEVOCETIRIZINE [Concomitant]
     Dosage: 5 UNK, UNK
  7. METHOTREXATE [Concomitant]
     Dosage: 2.5 mg, UNK
  8. MULTIVITAMIN                       /00097801/ [Concomitant]
     Dosage: UNK
  9. FISH OIL [Concomitant]
     Dosage: UNK
  10. VITAMIN B COMPLEX [Concomitant]
     Dosage: UNK
  11. VITAMIN C                          /00008001/ [Concomitant]
     Dosage: UNK

REACTIONS (6)
  - Pain [Unknown]
  - Pain in extremity [Unknown]
  - Sinusitis [Unknown]
  - Viral infection [Unknown]
  - Nasopharyngitis [Unknown]
  - Injection site rash [Recovered/Resolved]
